FAERS Safety Report 24700070 (Version 3)
Quarter: 2025Q2

REPORT INFORMATION
  Report Type: Spontaneous
  Country: US (occurrence: US)
  Receive Date: 20241205
  Receipt Date: 20250502
  Transmission Date: 20250716
  Serious: Yes (Hospitalization)
  Sender: ALVOGEN
  Company Number: US-ALVOGEN-2024095911

PATIENT
  Sex: Female

DRUGS (2)
  1. TERIPARATIDE [Suspect]
     Active Substance: TERIPARATIDE
     Indication: Osteoporosis
     Dosage: STRENGTH: 250 MCG/ML?DAILY; THERAPY ONGOING?620MCG/2.48ML 1 CT?EXPIRATION: JUL-2025
     Route: 058
     Dates: start: 202301
  2. TERIPARATIDE [Suspect]
     Active Substance: TERIPARATIDE
     Indication: Osteoporosis
     Dosage: PAST TWO MONTHS LOT NUMBER?620MCG/2.48ML 1CT?EXPIRATION: JUL-2025
     Route: 058

REACTIONS (4)
  - Urinary tract infection [Unknown]
  - Escherichia infection [Unknown]
  - Abdominal pain [Unknown]
  - Drug ineffective [Unknown]

NARRATIVE: CASE EVENT DATE: 20240101
